FAERS Safety Report 10241078 (Version 4)
Quarter: 2015Q1

REPORT INFORMATION
  Report Type: Spontaneous
  Country: US (occurrence: US)
  Receive Date: 20140617
  Receipt Date: 20150211
  Transmission Date: 20150720
  Serious: Yes (Hospitalization, Disabling, Other)
  Sender: FDA-Public Use
  Company Number: US-MERCK-1406USA007862

PATIENT
  Sex: Male
  Weight: 85.26 kg

DRUGS (2)
  1. PROPECIA [Suspect]
     Active Substance: FINASTERIDE
     Indication: ALOPECIA
     Dosage: 1 MG, QD
     Route: 048
  2. PROPECIA [Suspect]
     Active Substance: FINASTERIDE
     Dosage: 1 MG, QD
     Route: 048
     Dates: start: 20000808, end: 20051028

REACTIONS (27)
  - Cognitive disorder [Not Recovered/Not Resolved]
  - Myalgia [Unknown]
  - Libido decreased [Not Recovered/Not Resolved]
  - Anxiety [Not Recovered/Not Resolved]
  - Ejaculation failure [Not Recovered/Not Resolved]
  - Retinopathy [Unknown]
  - Myositis [Unknown]
  - Nervous system disorder [Not Recovered/Not Resolved]
  - Ejaculation disorder [Not Recovered/Not Resolved]
  - Sleep disorder [Not Recovered/Not Resolved]
  - Arthralgia [Recovering/Resolving]
  - Sexual dysfunction [Not Recovered/Not Resolved]
  - Sexual dysfunction [Not Recovered/Not Resolved]
  - Erectile dysfunction [Not Recovered/Not Resolved]
  - Retinal haemorrhage [Unknown]
  - Suicidal ideation [Unknown]
  - Frustration [Not Recovered/Not Resolved]
  - Dyspepsia [Unknown]
  - Stress [Unknown]
  - Depression [Not Recovered/Not Resolved]
  - Anger [Not Recovered/Not Resolved]
  - Flushing [Unknown]
  - Meniscus injury [Unknown]
  - Retinal disorder [Unknown]
  - Coagulopathy [Unknown]
  - Cerumen impaction [Unknown]
  - Depression [Unknown]

NARRATIVE: CASE EVENT DATE: 1999
